FAERS Safety Report 8799331 (Version 4)
Quarter: 2012Q4

REPORT INFORMATION
  Report Type: 
  Country: US (occurrence: US)
  Receive Date: 20120919
  Receipt Date: 20121026
  Transmission Date: 20130627
  Serious: Yes (Other)
  Sender: FDA-Public Use
  Company Number: US-PFIZER INC-2012230064

PATIENT
  Age: 82 Year
  Sex: Female
  Weight: 63.49 kg

DRUGS (7)
  1. LYRICA [Suspect]
     Indication: NEUROPATHY PERIPHERAL
     Dosage: UNK
     Route: 048
     Dates: start: 2006
  2. LYRICA [Suspect]
     Indication: HYPOAESTHESIA
  3. LYRICA [Suspect]
     Indication: HYPOAESTHESIA
  4. LYRICA [Suspect]
     Indication: HYPOAESTHESIA
  5. CELEBREX [Concomitant]
     Dosage: UNK
  6. ZANTAC [Concomitant]
     Indication: DYSPEPSIA
     Dosage: UNK
  7. CALTRATE [Concomitant]
     Indication: BONE DISORDER
     Dosage: UNK, 2x/day

REACTIONS (2)
  - Arthropathy [Unknown]
  - Gait disturbance [Unknown]
